FAERS Safety Report 4504321-3 (Version None)
Quarter: 2004Q4

REPORT INFORMATION
  Report Type: 
  Country: None (occurrence: None)
  Receive Date: 20041118
  Receipt Date: 20041109
  Transmission Date: 20050328
  Serious: Yes (Other)
  Sender: FDA-Public Use
  Company Number: 200418651US

PATIENT
  Sex: Female

DRUGS (4)
  1. KETEK [Suspect]
     Indication: PHARYNGOLARYNGEAL PAIN
     Route: 048
     Dates: start: 20041103, end: 20041107
  2. CARBATROL [Concomitant]
     Indication: BRONCHITIS
     Route: 048
  3. YASMIN [Concomitant]
     Dosage: DOSE: NOT PROVIDED
  4. EFFEXOR [Concomitant]
     Dosage: DOSE: NOT PROVIDED

REACTIONS (1)
  - CONVULSION [None]
